FAERS Safety Report 23362971 (Version 1)
Quarter: 2024Q1

REPORT INFORMATION
  Report Type: Spontaneous
  Country: US (occurrence: None)
  Receive Date: 20240103
  Receipt Date: 20240103
  Transmission Date: 20240410
  Serious: Yes (Other)
  Sender: FDA-Public Use
  Company Number: None

PATIENT
  Age: 78 Year
  Sex: Male
  Weight: 102 kg

DRUGS (2)
  1. OXALIPLATIN [Suspect]
     Active Substance: OXALIPLATIN
     Indication: Colorectal cancer
     Dosage: 300MG ONCE EVERY 14 DAYS INTRAVENOUS?
     Route: 042
     Dates: start: 20231127, end: 20231127
  2. OXALIPLATIN [Suspect]
     Active Substance: OXALIPLATIN
     Indication: Colorectal cancer
     Dosage: 250 MG ONCE EVERY 14 DAYS INTRAVENOUS?
     Route: 042
     Dates: start: 20231218, end: 20231218

REACTIONS (4)
  - Muscle spasms [None]
  - Dysphonia [None]
  - Dizziness [None]
  - Muscle spasms [None]

NARRATIVE: CASE EVENT DATE: 20230101
